FAERS Safety Report 5127469-1 (Version None)
Quarter: 2006Q4

REPORT INFORMATION
  Report Type: 
  Country: None (occurrence: None)
  Receive Date: 20061013
  Receipt Date: 20061013
  Transmission Date: 20070319
  Serious: No
  Sender: FDA-Public Use
  Company Number: None

PATIENT
  Age: 65 Year
  Sex: Male
  Weight: 85.7 kg

DRUGS (14)
  1. DAPTOMYCIN [Suspect]
     Indication: ENTEROCOCCAL INFECTION
     Dosage: 500 MG IV Q24H
     Route: 042
     Dates: start: 20060822, end: 20060830
  2. ZOSYN [Concomitant]
  3. VORICONAZOLE [Concomitant]
  4. ACYCLOVIR [Concomitant]
  5. NEUPOGEN [Concomitant]
  6. DOCUSATE [Concomitant]
  7. MIRALAX [Concomitant]
  8. PROTONIX [Concomitant]
  9. SENNA [Concomitant]
  10. MORPHINE [Concomitant]
  11. DIATRIZOATE SODIUM [Concomitant]
  12. HEPARIN [Concomitant]
  13. METRONIDAZOLE [Concomitant]
  14. TPN [Concomitant]

REACTIONS (2)
  - FALL [None]
  - RHABDOMYOLYSIS [None]
